FAERS Safety Report 12782928 (Version 3)
Quarter: 2020Q2

REPORT INFORMATION
  Report Type: Spontaneous
  Country: US (occurrence: US)
  Receive Date: 20160927
  Receipt Date: 20200415
  Transmission Date: 20200713
  Serious: No
  Sender: FDA-Public Use
  Company Number: US-PFIZER INC-2016445232

PATIENT
  Age: 68 Year
  Sex: Female

DRUGS (9)
  1. VANCOMYCIN HCL [Suspect]
     Active Substance: VANCOMYCIN HYDROCHLORIDE
  2. ATIVAN [Suspect]
     Active Substance: LORAZEPAM
  3. BACTRIM [Suspect]
     Active Substance: SULFAMETHOXAZOLE\TRIMETHOPRIM
  4. VICODIN [Suspect]
     Active Substance: ACETAMINOPHEN\HYDROCODONE BITARTRATE
  5. CODEINE [Suspect]
     Active Substance: CODEINE
  6. CIPROFLOXACIN. [Suspect]
     Active Substance: CIPROFLOXACIN
  7. TETRACYCLINE HCL [Suspect]
     Active Substance: TETRACYCLINE HYDROCHLORIDE
     Dosage: UNK
  8. ATIONYL [Suspect]
     Active Substance: ADEMETIONINE SULFATE TOSILATE
     Dosage: UNK
  9. BETHANECHOL [Suspect]
     Active Substance: BETHANECHOL

REACTIONS (1)
  - Drug hypersensitivity [Unknown]
